FAERS Safety Report 8674574 (Version 9)
Quarter: 2014Q2

REPORT INFORMATION
  Report Type: Spontaneous
  Country: US (occurrence: US)
  Receive Date: 20120720
  Receipt Date: 20131018
  Transmission Date: 20141212
  Serious: Yes (Hospitalization, Other)
  Sender: FDA-Public Use
  Company Number: US-PFIZER INC-2012175023

PATIENT
  Age: 82 Year
  Sex: Female

DRUGS (10)
  1. HEPARIN SODIUM [Suspect]
     Indication: ANTICOAGULANT THERAPY
     Dosage: 2000 IU, SINGLE
     Route: 013
     Dates: start: 20120718, end: 20120718
  2. HEPARIN SODIUM [Suspect]
     Dosage: 1000 IU, SINGLE
     Route: 013
     Dates: start: 20120718, end: 20120718
  3. AMIODARONE [Concomitant]
     Dosage: 100 MG, 2X/DAY
  4. ATORVASTATIN [Concomitant]
     Dosage: 40 MG, 1X/DAY
  5. SALMETEROL XINAFOATE/FLUTICASONE PROPIONATE [Concomitant]
     Dosage: 1 DF, 2X/DAY
  6. FUROSEMIDE [Concomitant]
     Dosage: 10 MG, DAILY
  7. LISINOPRIL [Concomitant]
     Dosage: 2.5 MG, 1X/DAY
  8. NAMENDA [Concomitant]
     Dosage: 10 MG, 2X/DAY
  9. POTASSIUM CHLORIDE [Concomitant]
     Dosage: 20 MEQ, 1X/DAY
     Route: 048
  10. WARFARIN [Concomitant]
     Dosage: 3 MG SATURDAY AND PER INSTUCTION

REACTIONS (5)
  - Haematoma [Recovered/Resolved]
  - Peripheral artery thrombosis [Recovered/Resolved]
  - Embolism [Recovered/Resolved]
  - Haemorrhage [Recovered/Resolved]
  - Vascular pseudoaneurysm [Recovered/Resolved]
